FAERS Safety Report 9546528 (Version 1)
Quarter: 2013Q3

REPORT INFORMATION
  Report Type: Spontaneous
  Country: US (occurrence: US)
  Receive Date: 20130923
  Receipt Date: 20130923
  Transmission Date: 20140515
  Serious: Yes (Other)
  Sender: FDA-Public Use
  Company Number: US-RB-058555-13

PATIENT
  Sex: Female

DRUGS (2)
  1. SUBOXONE FILM [Suspect]
     Indication: PRODUCT USED FOR UNKNOWN INDICATION
     Dosage: SUBOXONE FILM
     Route: 065
  2. NICOTINE [Concomitant]
     Indication: PRODUCT USED FOR UNKNOWN INDICATION
     Dosage: DOSING DETAILS UNKNOWN
     Route: 055

REACTIONS (4)
  - Suicidal ideation [Unknown]
  - Drug withdrawal syndrome [Unknown]
  - Dissociative disorder [Unknown]
  - Wrong technique in drug usage process [Not Recovered/Not Resolved]
